FAERS Safety Report 22281996 (Version 2)
Quarter: 2023Q2

REPORT INFORMATION
  Report Type: Spontaneous
  Country: US (occurrence: US)
  Receive Date: 20230504
  Receipt Date: 20230523
  Transmission Date: 20230722
  Serious: Yes (Other)
  Sender: FDA-Public Use
  Company Number: US-AMGEN-USASP2023073720

PATIENT
  Age: 67 Year
  Sex: Male

DRUGS (1)
  1. TAVNEOS [Suspect]
     Active Substance: AVACOPAN
     Indication: Granulomatosis with polyangiitis
     Dosage: 30 MILLIGRAM, BID, 30 MG
     Route: 048
     Dates: start: 20220804, end: 20230307

REACTIONS (2)
  - Granulomatosis with polyangiitis [Unknown]
  - Eye symptom [Unknown]

NARRATIVE: CASE EVENT DATE: 20230301
